FAERS Safety Report 14068933 (Version 1)
Quarter: 2017Q4

REPORT INFORMATION
  Report Type: Spontaneous
  Country: US (occurrence: US)
  Receive Date: 20171010
  Receipt Date: 20171010
  Transmission Date: 20180321
  Serious: Yes (Other)
  Sender: FDA-Public Use
  Company Number: US-MYLANLABS-2017M1062092

PATIENT
  Age: 72 Year
  Sex: Male

DRUGS (1)
  1. ALPROSTADIL. [Suspect]
     Active Substance: ALPROSTADIL
     Indication: ERECTILE DYSFUNCTION
     Dosage: UNK
     Route: 066

REACTIONS (3)
  - Penile haemorrhage [Recovering/Resolving]
  - Wrong technique in product usage process [Unknown]
  - Penis injury [Unknown]

NARRATIVE: CASE EVENT DATE: 20170927
